FAERS Safety Report 6516336-4 (Version None)
Quarter: 2009Q4

REPORT INFORMATION
  Report Type: 
  Country: None (occurrence: None)
  Receive Date: 20091223
  Receipt Date: 20091217
  Transmission Date: 20100525
  Serious: Yes (Hospitalization, Other)
  Sender: FDA-Public Use
  Company Number: A0797559A

PATIENT
  Age: 51 Year
  Sex: Female
  Weight: 91.5 kg

DRUGS (7)
  1. TYKERB [Suspect]
     Indication: BREAST CANCER
     Dosage: 1250MG PER DAY
     Route: 048
     Dates: start: 20090611
  2. RADIATION THERAPY [Suspect]
     Route: 065
     Dates: start: 20090610, end: 20090701
  3. TAMOXIFEN CITRATE [Concomitant]
     Indication: BREAST CANCER
     Dosage: 20MG AS DIRECTED
     Route: 048
     Dates: start: 20090115
  4. ZOFRAN [Concomitant]
     Dosage: 8MG THREE TIMES PER DAY
     Route: 048
  5. ZOMETA [Concomitant]
     Route: 042
     Dates: start: 20081120
  6. POTASSIUM CHLORIDE [Concomitant]
     Dosage: 20MEQ PER DAY
     Route: 048
     Dates: start: 20091130
  7. XELODA [Concomitant]
     Dosage: 1500MG AT NIGHT
     Route: 048

REACTIONS (10)
  - ABDOMINAL PAIN [None]
  - BLOOD PRESSURE DECREASED [None]
  - DIARRHOEA [None]
  - HAEMATOLOGY TEST ABNORMAL [None]
  - NAUSEA [None]
  - PANCYTOPENIA [None]
  - PYREXIA [None]
  - RASH MACULAR [None]
  - RASH PRURITIC [None]
  - VOMITING [None]
